FAERS Safety Report 17442762 (Version 1)
Quarter: 2020Q1

REPORT INFORMATION
  Report Type: Spontaneous
  Country: MX (occurrence: MX)
  Receive Date: 20200220
  Receipt Date: 20200220
  Transmission Date: 20200409
  Serious: Yes (Other)
  Sender: FDA-Public Use
  Company Number: MX-SUN PHARMACEUTICAL INDUSTRIES LTD-2020R1-237481

PATIENT
  Age: 74 Year
  Sex: Male

DRUGS (1)
  1. PREDNISONE. [Suspect]
     Active Substance: PREDNISONE
     Indication: DERMATITIS EXFOLIATIVE GENERALISED
     Dosage: 1 MG/KG/D
     Route: 065

REACTIONS (5)
  - Leukocytosis [Unknown]
  - Acute kidney injury [Unknown]
  - Immunosuppression [Unknown]
  - Syphilis [Unknown]
  - Dermatitis exfoliative generalised [Unknown]
